FAERS Safety Report 9644860 (Version 2)
Quarter: 2013Q4

REPORT INFORMATION
  Report Type: Report from Study
  Country: BR (occurrence: BR)
  Receive Date: 20131025
  Receipt Date: 20131222
  Transmission Date: 20140711
  Serious: Yes (Death, Other)
  Sender: FDA-Public Use
  Company Number: PHHY2013BR116043

PATIENT
  Age: 91 Year
  Sex: Female
  Weight: 50 kg

DRUGS (2)
  1. EXELON PATCH [Suspect]
     Indication: MEMORY IMPAIRMENT
     Dosage: 9.5 MG, QD
     Route: 062
  2. MACRODANTINA [Concomitant]
     Indication: BLADDER DISORDER
     Dosage: UNK UKN, UNK

REACTIONS (4)
  - Respiratory failure [Fatal]
  - Dementia Alzheimer^s type [Fatal]
  - Cognitive disorder [Not Recovered/Not Resolved]
  - Cerebrovascular accident [Not Recovered/Not Resolved]
